FAERS Safety Report 14055387 (Version 1)
Quarter: 2017Q4

REPORT INFORMATION
  Report Type: Spontaneous
  Country: US (occurrence: US)
  Receive Date: 20171006
  Receipt Date: 20171006
  Transmission Date: 20180321
  Serious: No
  Sender: FDA-Public Use
  Company Number: US-JNJFOC-20170823771

PATIENT
  Age: 3 Decade
  Sex: Male
  Weight: 79.38 kg

DRUGS (3)
  1. MENS ROGAINE EXTRA STRENGTH [Suspect]
     Active Substance: MINOXIDIL
     Indication: ALOPECIA
     Dosage: 1-2 ML
     Route: 061
  2. MENS ROGAINE EXTRA STRENGTH [Suspect]
     Active Substance: MINOXIDIL
     Indication: ALOPECIA
     Dosage: 1-2 ML
     Route: 061
     Dates: start: 20161029
  3. MENS ROGAINE EXTRA STRENGTH [Suspect]
     Active Substance: MINOXIDIL
     Indication: ALOPECIA
     Dosage: 1-2 ML
     Route: 061

REACTIONS (7)
  - Overdose [Unknown]
  - Drug effect incomplete [Unknown]
  - Alopecia [Not Recovered/Not Resolved]
  - Heart rate increased [Recovered/Resolved]
  - Inappropriate schedule of drug administration [Not Recovered/Not Resolved]
  - Wrong technique in product usage process [Not Recovered/Not Resolved]
  - Hair growth abnormal [Recovered/Resolved]

NARRATIVE: CASE EVENT DATE: 20161029
